FAERS Safety Report 11702450 (Version 2)
Quarter: 2016Q1

REPORT INFORMATION
  Report Type: Spontaneous
  Country: US (occurrence: US)
  Receive Date: 20151105
  Receipt Date: 20160226
  Transmission Date: 20160525
  Serious: Yes (Other)
  Sender: FDA-Public Use
  Company Number: US-KADMON PHARMACEUTICALS, LLC-KAD201511-003816

PATIENT
  Sex: Male

DRUGS (2)
  1. RIBAVIRIN. [Suspect]
     Active Substance: RIBAVIRIN
     Indication: HEPATITIS C
     Dosage: TABLET
     Route: 048
     Dates: start: 2015, end: 201510
  2. VIEKIRA PAK [Suspect]
     Active Substance: DASABUVIR\OMBITASVIR\PARITAPREVIR\RITONAVIR
     Indication: HEPATITIS C
     Dosage: 3 TABLETS IN AM, AND 1 TABLET IN PM
     Route: 048
     Dates: start: 2015, end: 2016

REACTIONS (6)
  - Hyperhidrosis [Unknown]
  - Ear infection [Recovered/Resolved]
  - Central nervous system lesion [Unknown]
  - Mycobacterium tuberculosis complex test positive [Unknown]
  - Lymphadenopathy [Unknown]
  - Tuberculosis [Unknown]

NARRATIVE: CASE EVENT DATE: 2015
